FAERS Safety Report 9049811 (Version 1)
Quarter: 2013Q1

REPORT INFORMATION
  Report Type: Spontaneous
  Country: US (occurrence: US)
  Receive Date: 20130205
  Receipt Date: 20130205
  Transmission Date: 20140127
  Serious: Yes (Other)
  Sender: FDA-Public Use
  Company Number: US-BAYER-2013-013377

PATIENT
  Age: 43 Year
  Sex: Female

DRUGS (13)
  1. YAZ [Suspect]
  2. AMITRIPTYLINE [Concomitant]
     Dosage: 25 MG, UNK
     Dates: start: 20090602
  3. METFORMIN [Concomitant]
     Indication: POLYCYSTIC OVARIES
     Dosage: 500 MG, UNK
     Dates: start: 20090615
  4. LORATADIN [Concomitant]
     Dosage: 10 MG, UNK
     Dates: start: 20090615
  5. AZITHROMYCIN [Concomitant]
     Dosage: 250 MG, UNK
     Dates: start: 20090615
  6. HYDROCHLOROTHIAZIDE [Concomitant]
     Dosage: 25 MG, UNK
     Dates: start: 20090616
  7. TIZANIDINE [Concomitant]
     Dosage: 4 MG, UNK
     Dates: start: 20090701
  8. NAPROXEN [Concomitant]
     Dosage: 500 MG, UNK
     Dates: start: 20090701
  9. HYDROCODONE W/APAP [Concomitant]
     Dosage: 5-500 MG
     Dates: start: 20090709
  10. CEPHALEXIN [Concomitant]
     Dosage: 500 MG, UNK
     Dates: start: 20090709
  11. SPIRONOLACTONE [Concomitant]
     Dosage: 25 MG, UNK
     Dates: start: 20090714
  12. FUROSEMIDE [Concomitant]
     Dosage: 40 MG, UNK
     Dates: start: 20090804
  13. KLOR-CON [Concomitant]
     Dosage: 10 MEQ, UNK
     Dates: start: 20090804

REACTIONS (1)
  - Deep vein thrombosis [Recovered/Resolved]
